FAERS Safety Report 10463054 (Version 2)
Quarter: 2014Q4

REPORT INFORMATION
  Report Type: Spontaneous
  Country: US (occurrence: US)
  Receive Date: 20140919
  Receipt Date: 20141021
  Transmission Date: 20150528
  Serious: Yes (Hospitalization, Other)
  Sender: FDA-Public Use
  Company Number: US-CIPLA LTD.-2014US01319

PATIENT
  Age: 2 Year
  Sex: Female

DRUGS (2)
  1. DONEPEZIL [Suspect]
     Active Substance: DONEPEZIL
     Dosage: 20 MG, UNK
  2. MEMANTINE [Suspect]
     Active Substance: MEMANTINE
     Dosage: 10 MG, UNK

REACTIONS (3)
  - Medication error [Unknown]
  - Encephalopathy [Recovered/Resolved]
  - Dystonia [None]
